FAERS Safety Report 9153506 (Version 1)
Quarter: 2013Q1

REPORT INFORMATION
  Report Type: Spontaneous
  Country: US (occurrence: US)
  Receive Date: 20130311
  Receipt Date: 20130311
  Transmission Date: 20140127
  Serious: Yes (Hospitalization)
  Sender: FDA-Public Use
  Company Number: US-BAYER-2013-028188

PATIENT
  Age: 19 Year
  Sex: Female
  Weight: 74 kg

DRUGS (12)
  1. YASMIN [Suspect]
  2. OCELLA [Suspect]
  3. DOXYCYCLINE HYCLATE [Concomitant]
     Dosage: 100 MG, BID
     Route: 048
  4. DILAUDID [Concomitant]
     Indication: PAIN
     Dosage: 2 MG, 1-2 EVERY 3-4 HOURS PRN
     Route: 048
  5. MORPHINE [Concomitant]
     Dosage: 15 MG, UNK
  6. ALBUTEROL [Concomitant]
     Dosage: PRN
  7. ADVAIR DISKUS [Concomitant]
     Dosage: 1 PUFF ONCE A DAY
  8. CIPROFLOXACIN [Concomitant]
     Dosage: 250 MG, 2 PER DAY
  9. SINGULAIR [Concomitant]
     Dosage: 10 MG, DAILY
     Route: 048
  10. SINGULAIR [Concomitant]
  11. MORPHIN [Concomitant]
  12. VICODIN [Concomitant]

REACTIONS (2)
  - Pulmonary embolism [None]
  - Jugular vein thrombosis [None]
